FAERS Safety Report 23590271 (Version 2)
Quarter: 2024Q3

REPORT INFORMATION
  Report Type: Report from Study
  Country: CO (occurrence: CO)
  Receive Date: 20240304
  Receipt Date: 20240719
  Transmission Date: 20241017
  Serious: Yes (Other)
  Sender: ABBVIE
  Company Number: CO-ABBVIE-5660220

PATIENT
  Age: 65 Year
  Sex: Male

DRUGS (2)
  1. SKYRIZI [Suspect]
     Active Substance: RISANKIZUMAB-RZAA
     Indication: Psoriasis
     Dosage: FORM STRENGTH WAS 150 MILLIGRAM.
     Route: 058
     Dates: start: 20231124, end: 20231124
  2. SKYRIZI [Suspect]
     Active Substance: RISANKIZUMAB-RZAA
     Dosage: FORM STRENGTH: 150 MILIGRAM
     Route: 058

REACTIONS (7)
  - Nephrolithiasis [Recovered/Resolved]
  - Fungal foot infection [Recovering/Resolving]
  - Fungal skin infection [Recovering/Resolving]
  - Dysuria [Unknown]
  - Urinary tract infection [Recovered/Resolved]
  - Urinary tract discomfort [Unknown]
  - Asthenia [Recovering/Resolving]

NARRATIVE: CASE EVENT DATE: 20231201
